FAERS Safety Report 22273063 (Version 1)
Quarter: 2023Q2

REPORT INFORMATION
  Report Type: Spontaneous
  Country: RO (occurrence: RO)
  Receive Date: 20230502
  Receipt Date: 20230502
  Transmission Date: 20230722
  Serious: Yes (Congenital Anomaly, Other)
  Sender: FDA-Public Use
  Company Number: RO-BRISTOL-MYERS SQUIBB COMPANY-2023-057648

PATIENT
  Age: 72 Year
  Sex: Male

DRUGS (13)
  1. OPDIVO [Suspect]
     Active Substance: NIVOLUMAB
     Indication: Renal cell carcinoma
     Dates: start: 20210617, end: 20210826
  2. OPDIVO [Suspect]
     Active Substance: NIVOLUMAB
     Dates: start: 20211007, end: 20220427
  3. YERVOY [Suspect]
     Active Substance: IPILIMUMAB
     Indication: Renal cell carcinoma
     Dates: start: 20210617, end: 20210826
  4. ZOLEDRONIC ACID [Concomitant]
     Active Substance: ZOLEDRONIC ACID
     Indication: Product used for unknown indication
     Dates: start: 20210617, end: 20210826
  5. LOCOID [Concomitant]
     Active Substance: HYDROCORTISONE BUTYRATE
     Indication: Product used for unknown indication
  6. DETRICAL [Concomitant]
     Indication: Product used for unknown indication
     Dosage: 4000IU/DAY, 3 MONTHS,
  7. SODIUM BICARBONATE [Concomitant]
     Active Substance: SODIUM BICARBONATE
     Indication: Product used for unknown indication
     Dosage: 1000MG 1CPX2/DAY
  8. ELIQUIS [Concomitant]
     Active Substance: APIXABAN
     Indication: Product used for unknown indication
     Dosage: 2.5MG 2PC/DAY
  9. PERINDOPRIL [Concomitant]
     Active Substance: PERINDOPRIL
     Indication: Product used for unknown indication
     Dosage: 5MH 1PC/DAY
  10. BISOPROLOL [Concomitant]
     Active Substance: BISOPROLOL
     Indication: Product used for unknown indication
     Dosage: 5MG 1PC/DAY
  11. LERIDIP [Concomitant]
     Indication: Product used for unknown indication
     Dosage: 10MG 1PC/DAY,
  12. ATORVASTATIN [Concomitant]
     Active Substance: ATORVASTATIN
     Indication: Product used for unknown indication
     Dosage: 20MG 1PC/DAY
  13. ALLOPURINOL [Concomitant]
     Active Substance: ALLOPURINOL
     Indication: Product used for unknown indication
     Dosage: 100MG/DAY

REACTIONS (10)
  - Pruritus [Unknown]
  - Skin lesion [Unknown]
  - Paratracheal lymphadenopathy [Unknown]
  - Pulmonary mass [Unknown]
  - Spinal cord disorder [Unknown]
  - Atrial flutter [Unknown]
  - Pancytopenia [Unknown]
  - Proteinuria [Unknown]
  - Acidosis [Unknown]
  - Nephrotic syndrome [Unknown]

NARRATIVE: CASE EVENT DATE: 20210701
